FAERS Safety Report 9060662 (Version 1)
Quarter: 2013Q1

REPORT INFORMATION
  Report Type: Spontaneous
  Country: US (occurrence: US)
  Receive Date: 20130204
  Receipt Date: 20130204
  Transmission Date: 20140127
  Serious: Yes (Other)
  Sender: FDA-Public Use
  Company Number: US-ROCHE-1186058

PATIENT
  Sex: Female

DRUGS (3)
  1. BONIVA [Suspect]
     Indication: OSTEOPOROSIS
     Route: 065
     Dates: start: 2001, end: 2009
  2. ACTONEL [Suspect]
     Indication: OSTEOPOROSIS
     Route: 065
     Dates: start: 2001, end: 2009
  3. FOSAMAX [Suspect]
     Indication: OSTEOPOROSIS
     Route: 065
     Dates: start: 2001, end: 2009

REACTIONS (3)
  - Low turnover osteopathy [Unknown]
  - Femur fracture [Unknown]
  - Emotional distress [Unknown]
